FAERS Safety Report 9778348 (Version 1)
Quarter: 2013Q4

REPORT INFORMATION
  Report Type: Spontaneous
  Country: US (occurrence: None)
  Receive Date: 20131219
  Receipt Date: 20131219
  Transmission Date: 20140711
  Serious: Yes (Disabling)
  Sender: FDA-Public Use
  Company Number: SYM-2013-14058

PATIENT
  Age: 52 Year
  Sex: Female

DRUGS (3)
  1. WELLBUTRIN [Suspect]
     Indication: PRODUCT USED FOR UNKNOWN INDICATION
  2. PAXIL [Suspect]
     Indication: DEPRESSION
     Dates: start: 2002, end: 2002
  3. (ALPRAZOLAM) [Suspect]
     Indication: PANIC ATTACK

REACTIONS (5)
  - Muscle atrophy [None]
  - Gait disturbance [None]
  - Dry mouth [None]
  - Fall [None]
  - Tremor [None]
